FAERS Safety Report 10548166 (Version 5)
Quarter: 2018Q2

REPORT INFORMATION
  Report Type: Spontaneous
  Country: US (occurrence: US)
  Receive Date: 20141028
  Receipt Date: 20180620
  Transmission Date: 20180711
  Serious: Yes (Hospitalization, Other)
  Sender: FDA-Public Use
  Company Number: US-AMGEN-USASP2014080785

PATIENT
  Age: 72 Year
  Sex: Female
  Weight: 71.21 kg

DRUGS (3)
  1. METHOTREXATE. [Concomitant]
     Active Substance: METHOTREXATE
     Dosage: UNK
  2. ENBREL [Suspect]
     Active Substance: ETANERCEPT
     Indication: PRODUCT USED FOR UNKNOWN INDICATION
     Dosage: UNK
     Route: 065
     Dates: start: 2000
  3. XELJANZ XR [Suspect]
     Active Substance: TOFACITINIB CITRATE
     Indication: RHEUMATOID ARTHRITIS
     Dosage: 11 MG, QD
     Route: 048

REACTIONS (10)
  - Treatment failure [Unknown]
  - Arthralgia [Unknown]
  - Lung disorder [Unknown]
  - Gallbladder enlargement [Unknown]
  - Prosthesis user [Unknown]
  - Urinary tract infection [Unknown]
  - Cholecystitis [Unknown]
  - Hernia repair [Unknown]
  - Clostridium difficile infection [Not Recovered/Not Resolved]
  - Blood count abnormal [Unknown]

NARRATIVE: CASE EVENT DATE: 201801
